FAERS Safety Report 9069593 (Version 4)
Quarter: 2013Q4

REPORT INFORMATION
  Report Type: Spontaneous
  Country: FR (occurrence: FR)
  Receive Date: 20130215
  Receipt Date: 20131024
  Transmission Date: 20140711
  Serious: Yes (Hospitalization)
  Sender: FDA-Public Use
  Company Number: FR-VERTEX PHARMACEUTICALS INC.-2013-002212

PATIENT
  Age: 54 Year
  Sex: Male
  Weight: 92.5 kg

DRUGS (8)
  1. INCIVO [Suspect]
     Indication: HEPATITIS C
     Dosage: 750 MG, TID
     Route: 048
     Dates: start: 20111031, end: 20120123
  2. COPEGUS [Suspect]
     Indication: HEPATITIS C
     Dosage: 1000 MG, QD
     Dates: start: 20111031, end: 20121005
  3. KARDEGIC [Concomitant]
     Indication: MYOCARDIAL INFARCTION
     Dosage: DOSAGE FORM: UNSPECIFIED
     Route: 065
     Dates: start: 20020101
  4. DEXERYL [Concomitant]
     Indication: DRY SKIN
     Dosage: DOSAGE FORM: UNSPECIFIED
     Route: 065
     Dates: start: 20111031
  5. DOLIPRANE [Concomitant]
     Indication: PROPHYLAXIS
     Dosage: DOSAGE FORM: UNSPECIFIED
     Route: 065
     Dates: start: 20111031
  6. CRESTOR [Concomitant]
     Indication: HYPERCHOLESTEROLAEMIA
     Dosage: 10 MG, QD
     Dates: start: 20010101
  7. NEBILOX [Concomitant]
     Indication: HYPERTENSION
     Dosage: 2.5 MG, QD
     Dates: start: 20010101
  8. PEGASYS [Concomitant]
     Indication: HEPATITIS C
     Dosage: 180 ?G, QW
     Dates: start: 20111031, end: 20120926

REACTIONS (4)
  - Umbilical hernia [Recovered/Resolved]
  - Diastasis recti abdominis [Recovered/Resolved]
  - Umbilical hernia repair [Recovered/Resolved]
  - Anaemia [Recovered/Resolved]
